FAERS Safety Report 14185823 (Version 1)
Quarter: 2017Q4

REPORT INFORMATION
  Report Type: Report from Study
  Country: US (occurrence: US)
  Receive Date: 20171114
  Receipt Date: 20171114
  Transmission Date: 20180321
  Serious: No
  Sender: FDA-Public Use
  Company Number: US-AMGEN-USASL2017169660

PATIENT
  Age: 64 Year
  Sex: Male

DRUGS (1)
  1. ENBREL [Suspect]
     Active Substance: ETANERCEPT
     Indication: PSORIATIC ARTHROPATHY
     Dosage: 50 MG, QWK
     Route: 065

REACTIONS (9)
  - Memory impairment [Unknown]
  - Confusional state [Unknown]
  - Pain in extremity [Recovered/Resolved]
  - Injection site bruising [Unknown]
  - Drug effect delayed [Unknown]
  - Attention deficit/hyperactivity disorder [Unknown]
  - Headache [Recovered/Resolved]
  - Fatigue [Unknown]
  - Sneezing [Recovered/Resolved]

NARRATIVE: CASE EVENT DATE: 201710
